FAERS Safety Report 19958064 (Version 1)
Quarter: 2021Q4

REPORT INFORMATION
  Report Type: Spontaneous
  Country: ES (occurrence: ES)
  Receive Date: 20211015
  Receipt Date: 20211015
  Transmission Date: 20220303
  Serious: Yes (Life-Threatening, Hospitalization)
  Sender: FDA-Public Use
  Company Number: None

PATIENT
  Age: 47 Year
  Sex: Female

DRUGS (5)
  1. VENLAFAXINE HYDROCHLORIDE [Suspect]
     Active Substance: VENLAFAXINE HYDROCHLORIDE
     Indication: Suicide attempt
     Dosage: 300 MG, QD
     Route: 048
     Dates: start: 20150907
  2. VENLAFAXINE HYDROCHLORIDE [Suspect]
     Active Substance: VENLAFAXINE HYDROCHLORIDE
     Indication: Borderline personality disorder
     Dosage: 7500 MG, TOTAL (30 CAPSULES)
     Route: 048
     Dates: start: 20210929, end: 20210929
  3. CLONAZEPAM [Suspect]
     Active Substance: CLONAZEPAM
     Indication: Suicide attempt
     Dosage: 360 MG, TOTAL
     Route: 048
     Dates: start: 20210929, end: 20210929
  4. TIANEPTINE SODIUM [Suspect]
     Active Substance: TIANEPTINE SODIUM
     Indication: Suicide attempt
     Dosage: 12.5 MG, Q8H (1 TABLET EACH 8 HRS)
     Route: 048
     Dates: start: 20191206
  5. TIANEPTINE SODIUM [Suspect]
     Active Substance: TIANEPTINE SODIUM
     Indication: Borderline personality disorder
     Dosage: 875 MG, TOTAL
     Route: 048
     Dates: start: 20210929, end: 20210929

REACTIONS (2)
  - Respiratory failure [Recovered/Resolved]
  - Depressed level of consciousness [Recovering/Resolving]

NARRATIVE: CASE EVENT DATE: 20210929
